FAERS Safety Report 11774210 (Version 1)
Quarter: 2015Q4

REPORT INFORMATION
  Report Type: Spontaneous
  Country: KR (occurrence: KR)
  Receive Date: 20151124
  Receipt Date: 20151124
  Transmission Date: 20160304
  Serious: Yes (Other)
  Sender: FDA-Public Use
  Company Number: ALCN2015KR007304

PATIENT
  Age: 77 Year
  Sex: Female

DRUGS (2)
  1. VIGAMOX [Suspect]
     Active Substance: MOXIFLOXACIN HYDROCHLORIDE
     Indication: PSEUDOMONAS INFECTION
     Dosage: 1 GTT, QH
     Route: 047
  2. TOBRAMYCIN. [Suspect]
     Active Substance: TOBRAMYCIN
     Indication: PREOPERATIVE CARE
     Dosage: 1 GTT, QH
     Route: 047

REACTIONS (2)
  - Drug ineffective [Unknown]
  - Off label use [Unknown]
